FAERS Safety Report 7597545-2 (Version None)
Quarter: 2011Q3

REPORT INFORMATION
  Report Type: 
  Country: None (occurrence: None)
  Receive Date: 20110708
  Receipt Date: 20110701
  Transmission Date: 20111222
  Serious: Yes (Other)
  Sender: FDA-Public Use
  Company Number: PHHY2011AU59874

PATIENT
  Sex: Male

DRUGS (1)
  1. FEMARA [Suspect]
     Indication: BREAST CANCER MALE

REACTIONS (1)
  - AGGRESSION [None]
